FAERS Safety Report 24984617 (Version 3)
Quarter: 2025Q2

REPORT INFORMATION
  Report Type: Spontaneous
  Country: US (occurrence: US)
  Receive Date: 20250219
  Receipt Date: 20250423
  Transmission Date: 20250716
  Serious: No
  Sender: BECTON DICKINSON
  Company Number: US-BECTON DICKINSON-US-BD-25-000068

PATIENT

DRUGS (1)
  1. CHLORAPREP WITH TINT [Suspect]
     Active Substance: CHLORHEXIDINE GLUCONATE\ISOPROPYL ALCOHOL
     Indication: Infection prophylaxis
     Route: 061

REACTIONS (3)
  - Injury associated with device [Recovered/Resolved]
  - Device breakage [Unknown]
  - Product label confusion [Unknown]

NARRATIVE: CASE EVENT DATE: 20240321
